FAERS Safety Report 8119922-3 (Version None)
Quarter: 2012Q1

REPORT INFORMATION
  Report Type: 
  Country: None (occurrence: None)
  Receive Date: 20120206
  Receipt Date: 20120206
  Transmission Date: 20120608
  Serious: Yes (Hospitalization)
  Sender: FDA-Public Use
  Company Number: None

PATIENT
  Sex: Female
  Weight: 78.0187 kg

DRUGS (1)
  1. PRADAXA [Suspect]
     Indication: ATRIAL FIBRILLATION
     Dosage: 150 MG 2X DAY
     Dates: start: 20110901, end: 20111028

REACTIONS (3)
  - GASTRIC PERFORATION [None]
  - POST PROCEDURAL COMPLICATION [None]
  - GASTRIC HAEMORRHAGE [None]
